FAERS Safety Report 16596648 (Version 2)
Quarter: 2019Q3

REPORT INFORMATION
  Report Type: Report from Study
  Country: US (occurrence: US)
  Receive Date: 20190719
  Receipt Date: 20190829
  Transmission Date: 20191004
  Serious: Yes (Hospitalization)
  Sender: FDA-Public Use
  Company Number: US-BAYER-2019-131101

PATIENT
  Age: 38 Year
  Sex: Female
  Weight: 80.73 kg

DRUGS (3)
  1. REMODULIN [Concomitant]
     Active Substance: TREPROSTINIL
     Dosage: UNK
  2. ADEMPAS [Suspect]
     Active Substance: RIOCIGUAT
     Indication: PULMONARY ARTERIAL HYPERTENSION
     Dosage: UNK
     Route: 048
     Dates: start: 20190629
  3. ADEMPAS [Suspect]
     Active Substance: RIOCIGUAT
     Indication: PULMONARY ARTERIAL HYPERTENSION
     Dosage: 1 MG, TID
     Route: 048
     Dates: start: 2019

REACTIONS (9)
  - Malaise [None]
  - Vomiting [None]
  - Hospitalisation [Recovered/Resolved]
  - Decreased appetite [None]
  - Nausea [Unknown]
  - Pain in jaw [None]
  - Device expulsion [Unknown]
  - Diarrhoea [Unknown]
  - Headache [None]

NARRATIVE: CASE EVENT DATE: 2019
